FAERS Safety Report 14905653 (Version 2)
Quarter: 2021Q2

REPORT INFORMATION
  Report Type: Spontaneous
  Country: US (occurrence: US)
  Receive Date: 20180517
  Receipt Date: 20210420
  Transmission Date: 20210716
  Serious: No
  Sender: FDA-Public Use
  Company Number: US-SA-2018SA035364

PATIENT
  Age: 11 Year
  Sex: Male

DRUGS (2)
  1. LANTUS [Suspect]
     Active Substance: INSULIN GLARGINE
     Dosage: SOMETIMES DOSE  1/2 UNIT INCREMENTS
     Route: 051
  2. LANTUS [Suspect]
     Active Substance: INSULIN GLARGINE
     Indication: DIABETES MELLITUS
     Dosage: 7?10 UNITS,QD
     Route: 051
     Dates: start: 2017

REACTIONS (3)
  - Liquid product physical issue [Unknown]
  - Blood glucose fluctuation [Unknown]
  - Stress [Unknown]
